FAERS Safety Report 9261065 (Version 1)
Quarter: 2013Q2

REPORT INFORMATION
  Report Type: Spontaneous
  Country: US (occurrence: US)
  Receive Date: 20130429
  Receipt Date: 20130429
  Transmission Date: 20140414
  Serious: No
  Sender: FDA-Public Use
  Company Number: US-AMGEN-USASP2012031894

PATIENT
  Age: 54 Year
  Sex: Male
  Weight: 62.59 kg

DRUGS (21)
  1. SENSIPAR [Suspect]
     Indication: PRODUCT USED FOR UNKNOWN INDICATION
     Dosage: 30 MG, QD
     Route: 048
     Dates: start: 20111118, end: 20120223
  2. SENSIPAR [Suspect]
     Dosage: 30 MG, QD
     Route: 048
     Dates: start: 20120421, end: 20120503
  3. SENSIPAR [Suspect]
     Dosage: 30 MG, QD
     Route: 048
     Dates: start: 20120516
  4. VENOFER [Concomitant]
     Dosage: 50 MG, Q2WK
     Route: 040
     Dates: start: 20120609
  5. HECTOROL [Concomitant]
     Dosage: 2 MUG, EVERY SCHEDULE DIALYSIS TREATMENT
     Route: 040
     Dates: start: 20120608
  6. LIDOCAINE [Concomitant]
     Dosage: 30 MG, QDIA EVERY DIALYSIS TREATMENT
     Route: 061
     Dates: start: 20120529
  7. CARVEDILOL [Concomitant]
     Dosage: 25 MG, BID
     Route: 048
     Dates: start: 20120421
  8. COZAAR [Concomitant]
     Dosage: 100 MG, UNK
     Route: 048
     Dates: start: 20120421
  9. LORAZEPAM [Concomitant]
     Dosage: 1 MG, PRN
     Route: 048
     Dates: start: 20111205
  10. LOTREL [Concomitant]
     Dosage: 10 MG, QD
     Dates: start: 20110905
  11. SEVELAMER [Concomitant]
     Dosage: 6 UNK, WITH MEALS
     Route: 048
     Dates: start: 20110709
  12. AMBIEN [Concomitant]
     Dosage: 10 MG, QHS
     Route: 048
     Dates: start: 20100122
  13. RENALTABS [Concomitant]
     Dosage: UNK UNK, QD, 1 TAB
     Route: 048
     Dates: start: 20090526
  14. TYLENOL                            /00020001/ [Concomitant]
     Dosage: 325 MG, PRN
     Route: 048
     Dates: start: 20080501
  15. MANNITOL [Concomitant]
     Dosage: 12.5 G, PRN
     Route: 042
     Dates: start: 20080501
  16. DEXTROJECT [Concomitant]
     Dosage: 1AMP, PRN
     Route: 040
     Dates: start: 20080501
  17. HEPATITIS B VACCINE [Concomitant]
     Dosage: 40 MUG, PRN, SERIES
     Route: 030
     Dates: start: 20080501, end: 20080501
  18. HEPATITIS B VACCINE [Concomitant]
     Dosage: 40 MUG, PRN, BOOSTER
     Route: 030
     Dates: start: 20080501, end: 20080501
  19. CANDIDA ALBICANS SKIN TEST ANTIGEN [Concomitant]
     Dosage: 0.1 ML, PRN
     Route: 023
     Dates: start: 20080501
  20. INFLUENZA VACCINE [Concomitant]
     Dosage: 0.1 ML, PRN
     Route: 030
     Dates: start: 20080501, end: 20080501
  21. PNEUMOVAX [Concomitant]
     Dosage: 0.5 ML, PRN
     Route: 030
     Dates: start: 20080501, end: 20080501

REACTIONS (6)
  - Agitation [Unknown]
  - Dry skin [Recovering/Resolving]
  - Abnormal dreams [Not Recovered/Not Resolved]
  - Headache [Recovered/Resolved]
  - Eye pain [Recovered/Resolved]
  - Diarrhoea [Recovered/Resolved]
